FAERS Safety Report 9868954 (Version 1)
Quarter: 2014Q1

REPORT INFORMATION
  Report Type: Spontaneous
  Country: RO (occurrence: RO)
  Receive Date: 20140205
  Receipt Date: 20140205
  Transmission Date: 20141002
  Serious: Yes (Hospitalization)
  Sender: FDA-Public Use
  Company Number: RO-ROCHE-1342561

PATIENT
  Age: 60 Year
  Sex: Male
  Weight: 67 kg

DRUGS (2)
  1. MABTHERA [Suspect]
     Indication: RHEUMATOID ARTHRITIS
     Route: 042
     Dates: start: 200911, end: 20131202
  2. METHOTREXATE [Concomitant]
     Route: 058
     Dates: start: 19990120, end: 20131201

REACTIONS (1)
  - Lung squamous cell carcinoma metastatic [Not Recovered/Not Resolved]
